FAERS Safety Report 4391708-5 (Version None)
Quarter: 2004Q3

REPORT INFORMATION
  Report Type: 
  Country: None (occurrence: None)
  Receive Date: 20040701
  Receipt Date: 20040622
  Transmission Date: 20050211
  Serious: Yes (Hospitalization)
  Sender: FDA-Public Use
  Company Number: 163-20785-04060052

PATIENT
  Age: 28 Year
  Sex: Female

DRUGS (5)
  1. THALOMID [Suspect]
     Indication: METASTASES TO BONE
     Dosage: 200 MG, HS, ORAL
     Route: 048
     Dates: start: 20040326
  2. THALOMID [Suspect]
     Indication: METASTASES TO CENTRAL NERVOUS SYSTEM
     Dosage: 200 MG, HS, ORAL
     Route: 048
     Dates: start: 20040326
  3. THALOMID [Suspect]
     Indication: METASTASES TO LIVER
     Dosage: 200 MG, HS, ORAL
     Route: 048
     Dates: start: 20040326
  4. THALOMID [Suspect]
     Indication: METASTASES TO LUNG
     Dosage: 200 MG, HS, ORAL
     Route: 048
     Dates: start: 20040326
  5. THALOMID [Suspect]
     Indication: METASTATIC MALIGNANT MELANOMA
     Dosage: 200 MG, HS, ORAL
     Route: 048
     Dates: start: 20040326

REACTIONS (1)
  - BRAIN TUMOUR OPERATION [None]
